FAERS Safety Report 5268159-4 (Version None)
Quarter: 2007Q1

REPORT INFORMATION
  Report Type: 
  Country: None (occurrence: None)
  Receive Date: 20070316
  Receipt Date: 20070316
  Transmission Date: 20070707
  Serious: No
  Sender: FDA-Public Use
  Company Number: None

PATIENT
  Age: 61 Year
  Sex: Male
  Weight: 74.8435 kg

DRUGS (1)
  1. GADOLINIUM [Suspect]
     Indication: CARDIAC STRESS TEST
     Dates: start: 20011001, end: 20041201

REACTIONS (2)
  - PRURITUS [None]
  - SKIN EXFOLIATION [None]
